FAERS Safety Report 6302162-8 (Version None)
Quarter: 2009Q3

REPORT INFORMATION
  Report Type: 
  Country: None (occurrence: None)
  Receive Date: 20090807
  Receipt Date: 20090731
  Transmission Date: 20100115
  Serious: Yes (Hospitalization)
  Sender: FDA-Public Use
  Company Number: ES-AMGEN-UK356658

PATIENT
  Sex: Female

DRUGS (5)
  1. PANITUMUMAB [Suspect]
     Indication: COLORECTAL CANCER
     Route: 042
     Dates: start: 20090519
  2. 5-FU [Suspect]
     Route: 042
     Dates: start: 20090630
  3. 5-FU [Suspect]
     Route: 042
     Dates: start: 20090630
  4. OXALIPLATIN [Concomitant]
     Route: 042
     Dates: start: 20090630
  5. LEUCOVORIN CALCIUM [Concomitant]
     Route: 042
     Dates: start: 20090630

REACTIONS (1)
  - OESOPHAGITIS [None]
